FAERS Safety Report 10027451 (Version 1)
Quarter: 2014Q1

REPORT INFORMATION
  Report Type: Spontaneous
  Country: FR (occurrence: None)
  Receive Date: 20140318
  Receipt Date: 20140318
  Transmission Date: 20141002
  Serious: Yes (Other)
  Sender: FDA-Public Use
  Company Number: AXC-2014-000170

PATIENT
  Age: 62 Year
  Sex: Female

DRUGS (2)
  1. PYLERA [Suspect]
     Route: 048
     Dates: start: 20140101, end: 20140106
  2. PANTOPRAZOLE (PANTOPRAZOLE) [Suspect]
     Route: 048
     Dates: start: 20140101, end: 20140106

REACTIONS (4)
  - Pain in extremity [None]
  - Gait disturbance [None]
  - Myalgia [None]
  - Facial neuralgia [None]
